FAERS Safety Report 4828810-7 (Version None)
Quarter: 2005Q4

REPORT INFORMATION
  Report Type: 
  Country: None (occurrence: None)
  Receive Date: 20051014
  Receipt Date: 20050622
  Transmission Date: 20060501
  Serious: No
  Sender: FDA-Public Use
  Company Number: 2005SP001323

PATIENT
  Age: 32 Year
  Sex: Female
  Weight: 54.4316 kg

DRUGS (5)
  1. LUNESTA [Suspect]
     Indication: INSOMNIA
     Dosage: 2 MG ;HS; ORAL; 3 MG;HS; OTAL
     Route: 048
     Dates: start: 20050603, end: 20050601
  2. LUNESTA [Suspect]
     Indication: INSOMNIA
     Dosage: 2 MG ;HS; ORAL; 3 MG;HS; OTAL
     Route: 048
     Dates: start: 20050601
  3. RITALIN [Concomitant]
  4. STEROID [Concomitant]
  5. LORTAB [Concomitant]

REACTIONS (1)
  - DYSGEUSIA [None]
